FAERS Safety Report 19715447 (Version 2)
Quarter: 2021Q3

REPORT INFORMATION
  Report Type: Spontaneous
  Country: CZ (occurrence: CZ)
  Receive Date: 20210818
  Receipt Date: 20210819
  Transmission Date: 20211014
  Serious: Yes (Death, Other)
  Sender: FDA-Public Use
  Company Number: CZ-CELGENEUS-CZE-20210804066

PATIENT
  Age: 85 Year
  Sex: Male

DRUGS (4)
  1. VALACICLOVIR [Concomitant]
     Active Substance: VALACYCLOVIR HYDROCHLORIDE
     Indication: PRODUCT USED FOR UNKNOWN INDICATION
     Route: 065
  2. PREDNISOLONE. [Concomitant]
     Active Substance: PREDNISOLONE
     Indication: PRODUCT USED FOR UNKNOWN INDICATION
     Route: 065
  3. DEXAMETHASONE. [Concomitant]
     Active Substance: DEXAMETHASONE
     Indication: PRODUCT USED FOR UNKNOWN INDICATION
     Route: 065
     Dates: start: 20200810
  4. REVLIMID [Suspect]
     Active Substance: LENALIDOMIDE
     Indication: PRODUCT USED FOR UNKNOWN INDICATION
     Dosage: 10 MILLIGRAM
     Route: 048
     Dates: start: 20200810

REACTIONS (9)
  - Infection [Unknown]
  - Anaemia [Unknown]
  - Death [Fatal]
  - Anaemia [Recovered/Resolved]
  - Cervical spinal stenosis [Unknown]
  - Infection [Recovered/Resolved]
  - Hypoacusis [Unknown]
  - Rhinorrhoea [Unknown]
  - Infection [Unknown]

NARRATIVE: CASE EVENT DATE: 20200810
